FAERS Safety Report 23832168 (Version 1)
Quarter: 2024Q2

REPORT INFORMATION
  Report Type: Spontaneous
  Country: US (occurrence: US)
  Receive Date: 20240508
  Receipt Date: 20240508
  Transmission Date: 20240716
  Serious: No
  Sender: FDA-Public Use
  Company Number: US-ABBVIE-5744707

PATIENT
  Age: 55 Year
  Sex: Female

DRUGS (3)
  1. SKYRIZI [Suspect]
     Active Substance: RISANKIZUMAB-RZAA
     Indication: Psoriasis
     Dosage: TIME INTERVAL: TOTAL: FORM STRENGTH: 150 MILLIGRAM/WEEK 4
     Route: 058
     Dates: start: 20230821, end: 20230821
  2. SKYRIZI [Suspect]
     Active Substance: RISANKIZUMAB-RZAA
     Dosage: FORM STRENGTH: 150 MILLIGRAM
     Route: 058
     Dates: start: 20231113
  3. SKYRIZI [Suspect]
     Active Substance: RISANKIZUMAB-RZAA
     Dosage: TIME INTERVAL: TOTAL: FORM STRENGTH: 150 MILLIGRAM/WEEK 0
     Route: 058
     Dates: start: 20230724, end: 20230724

REACTIONS (6)
  - Abscess limb [Recovering/Resolving]
  - Pyrexia [Not Recovered/Not Resolved]
  - Blister [Unknown]
  - Vomiting [Unknown]
  - Oral herpes [Unknown]
  - Back pain [Unknown]

NARRATIVE: CASE EVENT DATE: 20240420
